FAERS Safety Report 18971281 (Version 1)
Quarter: 2021Q1

REPORT INFORMATION
  Report Type: Spontaneous
  Country: IT (occurrence: IT)
  Receive Date: 20210305
  Receipt Date: 20210305
  Transmission Date: 20210420
  Serious: Yes (Other)
  Sender: FDA-Public Use
  Company Number: IT-SUN PHARMACEUTICAL INDUSTRIES LTD-2021RR-284256

PATIENT
  Age: 62 Year
  Sex: Male

DRUGS (1)
  1. BICALUTAMIDE SUN 50 MG COMPRESSE RIVESTITE CON FILM [Suspect]
     Active Substance: BICALUTAMIDE
     Indication: PRODUCT USED FOR UNKNOWN INDICATION
     Dosage: 50 MILLIGRAM, DAILY
     Route: 048

REACTIONS (2)
  - Therapeutic product effect decreased [Recovering/Resolving]
  - Mastitis [Recovering/Resolving]

NARRATIVE: CASE EVENT DATE: 20210212
